FAERS Safety Report 7296281-X (Version None)
Quarter: 2011Q1

REPORT INFORMATION
  Report Type: 
  Country: None (occurrence: None)
  Receive Date: 20110211
  Receipt Date: 20110211
  Transmission Date: 20110831
  Serious: Yes (Other)
  Sender: FDA-Public Use
  Company Number: None

PATIENT
  Age: 44 Year
  Sex: Female

DRUGS (1)
  1. VENLAFAXINE HCL [Suspect]
     Dosage: 75MG DAILY PO
     Route: 048

REACTIONS (3)
  - ARTHRITIS [None]
  - RHEUMATOID FACTOR INCREASED [None]
  - ANTI-CYCLIC CITRULLINATED PEPTIDE ANTIBODY POSITIVE [None]
